FAERS Safety Report 13535348 (Version 2)
Quarter: 2017Q2

REPORT INFORMATION
  Report Type: Spontaneous
  Country: US (occurrence: US)
  Receive Date: 20170511
  Receipt Date: 20170511
  Transmission Date: 20170830
  Serious: Yes (Other)
  Sender: FDA-Public Use
  Company Number: US-PFIZER INC-2017201324

PATIENT
  Age: 46 Year
  Sex: Female

DRUGS (6)
  1. ALBUTEROL /00139501/ [Concomitant]
     Active Substance: ALBUTEROL
     Dosage: UNK
  2. SERTRALINE HCL [Suspect]
     Active Substance: SERTRALINE HYDROCHLORIDE
     Dosage: 50 MG, 3X/DAY (STARTED 3 MONTHS PRIOR)
  3. THIORIDAZINE [Concomitant]
     Active Substance: THIORIDAZINE
     Dosage: UNK
  4. CLONAZEPAM. [Concomitant]
     Active Substance: CLONAZEPAM
     Dosage: UNK
  5. DEXTROMETHORPHAN HYDROBROMIDE/GUAIFENESIN [Suspect]
     Active Substance: DEXTROMETHORPHAN HYDROBROMIDE\GUAIFENESIN
     Indication: VIRAL UPPER RESPIRATORY TRACT INFECTION
     Dosage: (DEXTROMETHORPHAN HYDROBROMIDE 10 MG/5 ML, GUAIFENESIN 100 MG/5 ML).
  6. TRAZODONE [Suspect]
     Active Substance: TRAZODONE HYDROCHLORIDE
     Dosage: 50 MG, DAILY

REACTIONS (3)
  - Cerebral vasoconstriction [Recovered/Resolved]
  - Reversible cerebral vasoconstriction syndrome [Recovered/Resolved]
  - Cerebrovascular accident [Recovered/Resolved]
